FAERS Safety Report 7689059-6 (Version None)
Quarter: 2011Q3

REPORT INFORMATION
  Report Type: 
  Country: None (occurrence: None)
  Receive Date: 20110817
  Receipt Date: 20110808
  Transmission Date: 20111222
  Serious: Yes (Death)
  Sender: FDA-Public Use
  Company Number: JP-BRISTOL-MYERS SQUIBB COMPANY-15974264

PATIENT

DRUGS (2)
  1. MITOMYCIN [Suspect]
     Indication: GASTRIC CANCER
  2. DOXORUBICIN HCL [Suspect]
     Indication: GASTRIC CANCER

REACTIONS (1)
  - PULMONARY VENO-OCCLUSIVE DISEASE [None]
